FAERS Safety Report 7714725-3 (Version None)
Quarter: 2011Q3

REPORT INFORMATION
  Report Type: 
  Country: None (occurrence: None)
  Receive Date: 20110804
  Receipt Date: 20100728
  Transmission Date: 20111222
  Serious: Yes (Other)
  Sender: FDA-Public Use
  Company Number: DSU-2010-03745

PATIENT
  Age: 63 Year
  Sex: Male
  Weight: 76.6579 kg

DRUGS (4)
  1. SIMVASTATIN [Suspect]
     Indication: BLOOD CHOLESTEROL INCREASED
     Dosage: PER ORAL
     Route: 048
     Dates: end: 20100601
  2. BENICAR HCT [Suspect]
     Indication: HYPERTENSION
     Dosage: 40/25MG (QD), PER ORAL ; 40/25MG (QD), PER ORAL ; 40/25MG (QD), PER ORAL
     Route: 048
     Dates: start: 20100714, end: 20100714
  3. BENICAR HCT [Suspect]
     Indication: HYPERTENSION
     Dosage: 40/25MG (QD), PER ORAL ; 40/25MG (QD), PER ORAL ; 40/25MG (QD), PER ORAL
     Route: 048
     Dates: start: 20050101, end: 20100401
  4. BENICAR HCT [Suspect]
     Indication: HYPERTENSION
     Dosage: 40/25MG (QD), PER ORAL ; 40/25MG (QD), PER ORAL ; 40/25MG (QD), PER ORAL
     Route: 048
     Dates: start: 20100701, end: 20100706

REACTIONS (4)
  - NAUSEA [None]
  - HEPATIC ENZYME INCREASED [None]
  - VOMITING [None]
  - FAECES DISCOLOURED [None]
